FAERS Safety Report 4618827-X (Version None)
Quarter: 2005Q1

REPORT INFORMATION
  Report Type: 
  Country: None (occurrence: None)
  Receive Date: 20050323
  Receipt Date: 20050304
  Transmission Date: 20050727
  Serious: Yes (Death)
  Sender: FDA-Public Use
  Company Number: USA050392697

PATIENT
  Sex: Male

DRUGS (2)
  1. HUMULIN N [Suspect]
     Indication: DIABETES MELLITUS
     Dosage: 66 U DAY
  2. HUMULIN R [Suspect]
     Indication: DIABETES MELLITUS
     Dosage: 16 U/ 1 IN THE MORNING

REACTIONS (1)
  - CARDIAC FAILURE [None]
